FAERS Safety Report 8173942-1 (Version None)
Quarter: 2012Q1

REPORT INFORMATION
  Report Type: 
  Country: None (occurrence: None)
  Receive Date: 20120229
  Receipt Date: 20120226
  Transmission Date: 20120608
  Serious: Yes (Death, Other)
  Sender: FDA-Public Use
  Company Number: US-PFIZER INC-2012050103

PATIENT
  Age: 6 Year
  Sex: Male

DRUGS (1)
  1. VIAGRA [Suspect]
     Dosage: UNK
     Dates: start: 20120226

REACTIONS (4)
  - SCREAMING [None]
  - DEATH [None]
  - ACCIDENTAL DRUG INTAKE BY CHILD [None]
  - CYANOSIS [None]
